FAERS Safety Report 9413309 (Version 1)
Quarter: 2013Q3

REPORT INFORMATION
  Report Type: Spontaneous
  Country: US (occurrence: US)
  Receive Date: 20130722
  Receipt Date: 20130722
  Transmission Date: 20140515
  Serious: Yes (Other)
  Sender: FDA-Public Use
  Company Number: US-ASTRAZENECA-2013SE52752

PATIENT
  Age: 74 Year
  Sex: Female
  Weight: 50.8 kg

DRUGS (9)
  1. LISINOPRIL [Suspect]
     Indication: BLOOD PRESSURE ABNORMAL
     Route: 048
  2. LISINOPRIL [Suspect]
     Indication: BLOOD PRESSURE ABNORMAL
     Route: 048
  3. BRILINTA [Suspect]
     Indication: MYOCARDIAL INFARCTION
     Route: 048
     Dates: start: 201306
  4. BRILINTA [Suspect]
     Indication: STENT PLACEMENT
     Route: 048
     Dates: start: 201306
  5. ASPIRIN [Concomitant]
     Indication: CARDIAC DISORDER
     Dates: start: 201306
  6. LORAZAPAM [Concomitant]
     Indication: ANXIETY
  7. SERTRALINE HCL [Concomitant]
     Indication: ANXIETY
  8. D3 SUPPLEMENT [Concomitant]
  9. MULTIVITAMIN [Concomitant]

REACTIONS (5)
  - Myocardial infarction [Unknown]
  - Contusion [Not Recovered/Not Resolved]
  - Weight decreased [Unknown]
  - Decreased appetite [Unknown]
  - Off label use [Unknown]
